FAERS Safety Report 23966808 (Version 5)
Quarter: 2025Q3

REPORT INFORMATION
  Report Type: Report from Study
  Country: US (occurrence: US)
  Receive Date: 20240612
  Receipt Date: 20250716
  Transmission Date: 20251020
  Serious: Yes (Hospitalization, Other)
  Sender: TAKEDA
  Company Number: US-TAKEDA-2023TUS116018

PATIENT
  Age: 72 Year
  Sex: Female

DRUGS (15)
  1. IXAZOMIB [Suspect]
     Active Substance: IXAZOMIB
     Indication: Plasma cell myeloma
  2. IXAZOMIB [Suspect]
     Active Substance: IXAZOMIB
     Indication: Plasma cell myeloma
     Dosage: 3 MILLIGRAM, 1/WEEK
  3. IXAZOMIB [Suspect]
     Active Substance: IXAZOMIB
  4. POMALYST [Concomitant]
     Active Substance: POMALIDOMIDE
  5. FLONASE ALLERGY RELIEF [Concomitant]
     Active Substance: FLUTICASONE PROPIONATE
  6. CODEINE [Concomitant]
     Active Substance: CODEINE
  7. ASPIRIN [Concomitant]
     Active Substance: ASPIRIN
  8. VITAMIN D3 [Concomitant]
     Active Substance: CHOLECALCIFEROL
  9. PEPCID COMPLETE [Concomitant]
     Active Substance: CALCIUM CARBONATE\FAMOTIDINE\MAGNESIUM HYDROXIDE
  10. Losartan potassium accord [Concomitant]
  11. LUMIFY [Concomitant]
     Active Substance: BRIMONIDINE TARTRATE
  12. ACYCLOVIR [Concomitant]
     Active Substance: ACYCLOVIR
  13. CALCIUM\VITAMIN D [Concomitant]
     Active Substance: CALCIUM\VITAMIN D
  14. DEXAMETHASONE [Concomitant]
     Active Substance: DEXAMETHASONE
  15. FUROSEMIDE [Concomitant]
     Active Substance: FUROSEMIDE

REACTIONS (9)
  - Upper limb fracture [Unknown]
  - Nerve injury [Unknown]
  - Muscle rupture [Not Recovered/Not Resolved]
  - Fatigue [Unknown]
  - Upper respiratory tract infection [Not Recovered/Not Resolved]
  - Pain [Not Recovered/Not Resolved]
  - Joint swelling [Unknown]
  - Hypokinesia [Unknown]
  - Protein total decreased [Unknown]

NARRATIVE: CASE EVENT DATE: 20231126
